FAERS Safety Report 6826814-6 (Version None)
Quarter: 2010Q3

REPORT INFORMATION
  Report Type: 
  Country: None (occurrence: None)
  Receive Date: 20100709
  Receipt Date: 20100628
  Transmission Date: 20110219
  Serious: Yes (Other)
  Sender: FDA-Public Use
  Company Number: DE-CELGENEUS-062-21880-10062931

PATIENT
  Sex: Male

DRUGS (2)
  1. REVLIMID [Suspect]
     Indication: PRODUCT USED FOR UNKNOWN INDICATION
     Route: 048
  2. REVLIMID [Suspect]
     Route: 048

REACTIONS (5)
  - DISTURBANCE IN ATTENTION [None]
  - DYSURIA [None]
  - FATIGUE [None]
  - OEDEMA PERIPHERAL [None]
  - RESTLESSNESS [None]
